FAERS Safety Report 6367347-3 (Version None)
Quarter: 2009Q3

REPORT INFORMATION
  Report Type: 
  Country: None (occurrence: None)
  Receive Date: 20090921
  Receipt Date: 20090909
  Transmission Date: 20100115
  Serious: Yes (Hospitalization)
  Sender: FDA-Public Use
  Company Number: SE-ROCHE-654450

PATIENT
  Weight: 68.2 kg

DRUGS (6)
  1. CAPECITABINE [Suspect]
     Indication: GASTRIC CANCER
     Route: 065
  2. OMEPRAZOLE [Concomitant]
     Route: 048
  3. OXYCONTIN [Concomitant]
     Route: 048
  4. ACETAMINOPHEN [Concomitant]
     Dosage: FREQUENCY: 2 DOSEFORM FOUR TIMES A DAY.
     Route: 048
  5. CILAXORAL [Concomitant]
     Dosage: DOSE: 10 DROPS.  DOSING AMOUNT:  7.5 MG/ML
     Route: 048
  6. OXASCAND [Concomitant]

REACTIONS (2)
  - CHILLS [None]
  - PYREXIA [None]
